FAERS Safety Report 24592183 (Version 1)
Quarter: 2024Q4

REPORT INFORMATION
  Report Type: Spontaneous
  Country: IL (occurrence: IL)
  Receive Date: 20241108
  Receipt Date: 20241108
  Transmission Date: 20250115
  Serious: Yes (Death)
  Sender: TEVA
  Company Number: IL-TEVA-VS-3260898

PATIENT
  Age: 55 Year
  Sex: Male

DRUGS (1)
  1. DICLOFENAC [Suspect]
     Active Substance: DICLOFENAC
     Indication: Product used for unknown indication
     Dosage: STRENGTH:75 MG/3 ML
     Route: 065

REACTIONS (1)
  - Death [Fatal]
